FAERS Safety Report 7350210-9 (Version None)
Quarter: 2011Q1

REPORT INFORMATION
  Report Type: 
  Country: None (occurrence: None)
  Receive Date: 20110309
  Receipt Date: 20110309
  Transmission Date: 20110831
  Serious: Yes (Hospitalization)
  Sender: FDA-Public Use
  Company Number: None

PATIENT
  Sex: Male
  Weight: 62.1 kg

DRUGS (2)
  1. CISPLATIN [Suspect]
     Dosage: 45 MG
     Dates: end: 20110228
  2. TAXOL [Suspect]
     Dosage: 90 MG

REACTIONS (7)
  - MUSCLE SPASMS [None]
  - TREMOR [None]
  - DIVERTICULITIS [None]
  - ABDOMINAL PAIN [None]
  - NAUSEA [None]
  - HEADACHE [None]
  - VOMITING [None]
